FAERS Safety Report 24154357 (Version 1)
Quarter: 2024Q3

REPORT INFORMATION
  Report Type: Spontaneous
  Country: US (occurrence: US)
  Receive Date: 20240730
  Receipt Date: 20240730
  Transmission Date: 20241017
  Serious: No
  Sender: SANOFI AVENTIS
  Company Number: US-SA-SAC20240725000813

PATIENT
  Age: 23 Year
  Sex: Female

DRUGS (1)
  1. DUPIXENT [Suspect]
     Active Substance: DUPILUMAB
     Indication: Asthma
     Dosage: 300 MG, QOW
     Route: 058
     Dates: start: 202302

REACTIONS (4)
  - Dysphagia [Unknown]
  - Swelling [Unknown]
  - Oropharyngeal discomfort [Not Recovered/Not Resolved]
  - Secretion discharge [Unknown]

NARRATIVE: CASE EVENT DATE: 20240701
